FAERS Safety Report 7830396-X (Version None)
Quarter: 2011Q4

REPORT INFORMATION
  Report Type: 
  Country: None (occurrence: None)
  Receive Date: 20111021
  Receipt Date: 20111019
  Transmission Date: 20120403
  Serious: Yes (Hospitalization, Other)
  Sender: FDA-Public Use
  Company Number: HR-PFIZER INC-2011251356

PATIENT
  Age: 64 Year
  Sex: Female

DRUGS (4)
  1. XALATAN [Suspect]
     Indication: OCULAR HYPERTENSION
  2. MAGNESIUM [Concomitant]
     Indication: MUSCLE SPASMS
     Route: 048
  3. XALATAN [Suspect]
     Indication: OPEN ANGLE GLAUCOMA
     Dosage: 1 GTT, 1X/DAY
     Route: 047
     Dates: start: 20070101, end: 20110601
  4. HYALURONIC ACID [Concomitant]

REACTIONS (7)
  - MUSCLE SPASMS [None]
  - EPILEPSY [None]
  - SYNCOPE [None]
  - VISUAL ACUITY REDUCED [None]
  - CENTRAL NERVOUS SYSTEM LESION [None]
  - SPEECH DISORDER [None]
  - PERIORBITAL OEDEMA [None]
